FAERS Safety Report 7378913-0 (Version None)
Quarter: 2011Q1

REPORT INFORMATION
  Report Type: 
  Country: None (occurrence: None)
  Receive Date: 20110317
  Receipt Date: 20110302
  Transmission Date: 20110831
  Serious: Yes (Hospitalization, Other)
  Sender: FDA-Public Use
  Company Number: 2011MA001607

PATIENT
  Age: 85 Year
  Sex: Female
  Weight: 68 kg

DRUGS (1)
  1. METFORMIN HYDROCHLORIDE [Suspect]
     Indication: TYPE 2 DIABETES MELLITUS
     Dosage: 850 MG TID, PO
     Route: 048

REACTIONS (11)
  - TACHYPNOEA [None]
  - CARDIOPULMONARY FAILURE [None]
  - CYANOSIS [None]
  - MULTI-ORGAN FAILURE [None]
  - HIP ARTHROPLASTY [None]
  - COMA [None]
  - LACTIC ACIDOSIS [None]
  - BODY TEMPERATURE DECREASED [None]
  - BLOOD PRESSURE DECREASED [None]
  - SYSTEMIC INFLAMMATORY RESPONSE SYNDROME [None]
  - HYPERKALAEMIA [None]
